FAERS Safety Report 7994392-4 (Version None)
Quarter: 2011Q4

REPORT INFORMATION
  Report Type: 
  Country: None (occurrence: None)
  Receive Date: 20111220
  Receipt Date: 20111212
  Transmission Date: 20120403
  Serious: Yes (Other)
  Sender: FDA-Public Use
  Company Number: JP-ASTELLAS-2011JP009308

PATIENT
  Age: 67 Year
  Sex: Female

DRUGS (6)
  1. PREDNISOLONE [Concomitant]
     Dosage: 20 MG, UNKNOWN/D
     Route: 048
  2. RITUXIMAB [Concomitant]
     Dosage: 375 MG/M2, WEEKLY
     Route: 065
  3. RITUXIMAB [Concomitant]
     Dosage: UNK
     Route: 065
     Dates: end: 20060501
  4. PREDNISOLONE [Concomitant]
     Dosage: 60 MG, UNKNOWN/D
     Route: 048
  5. PROTOPIC [Suspect]
     Indication: PARANEOPLASTIC PEMPHIGUS
     Route: 061
  6. PREDNISOLONE [Concomitant]
     Dosage: 15 MG, UNKNOWN/D
     Route: 048

REACTIONS (2)
  - OFF LABEL USE [None]
  - FUNGAL SKIN INFECTION [None]
